FAERS Safety Report 6758035-X (Version None)
Quarter: 2010Q2

REPORT INFORMATION
  Report Type: 
  Country: None (occurrence: None)
  Receive Date: 20100607
  Receipt Date: 20100607
  Transmission Date: 20101027
  Serious: Yes (Hospitalization, Other)
  Sender: FDA-Public Use
  Company Number: DE-ABBOTT-10P-062-0648498-00

PATIENT
  Age: 42 Year
  Sex: Female
  Weight: 62 kg

DRUGS (8)
  1. AKINETON [Suspect]
     Indication: DRUG USE FOR UNKNOWN INDICATION
     Dosage: DAILY, PROLONGED-RELEASE, SEVERAL BREAKS
     Route: 048
     Dates: start: 20091009, end: 20091103
  2. ABILIFY [Suspect]
     Indication: PSYCHOTIC DISORDER
     Dosage: SINGLE DOSE DIFFERENT, SEVERAL BREAKS
     Route: 048
     Dates: start: 20090915, end: 20091030
  3. HALDOL [Suspect]
     Indication: DRUG USE FOR UNKNOWN INDICATION
     Dosage: SINGLE DOSE DIFFERENT, BREAK:  16-
     Route: 048
     Dates: start: 20090915, end: 20091018
  4. CLOZAPINE [Suspect]
     Indication: SCHIZOPHRENIA, CATATONIC TYPE
     Dosage: SINGLE DOSE DIFF SEVERAL BREAKS 25/100MG
     Dates: start: 20091009
  5. PROMETHAZINE [Suspect]
     Indication: DRUG USE FOR UNKNOWN INDICATION
     Route: 030
     Dates: start: 20091008, end: 20091008
  6. PROMETHAZINE [Suspect]
     Route: 048
     Dates: start: 20091011, end: 20091101
  7. CIATYL-Z ACUPHASE [Suspect]
     Indication: PSYCHOTIC DISORDER
     Route: 030
     Dates: start: 20091006, end: 20091006
  8. CIATYL-Z ACUPHASE [Suspect]
     Route: 030
     Dates: start: 20091022, end: 20091022

REACTIONS (1)
  - HEPATITIS ACUTE [None]
